FAERS Safety Report 10701058 (Version 2)
Quarter: 2015Q1

REPORT INFORMATION
  Report Type: Report from Study
  Country: US (occurrence: US)
  Receive Date: 20150109
  Receipt Date: 20150216
  Transmission Date: 20150721
  Serious: Yes (Other)
  Sender: FDA-Public Use
  Company Number: PHEH2014US026217

PATIENT
  Sex: Female

DRUGS (1)
  1. EXJADE [Suspect]
     Active Substance: DEFERASIROX
     Indication: HAEMOCHROMATOSIS
     Dosage: 200 MG, QD
     Route: 048

REACTIONS (5)
  - VIIth nerve paralysis [Unknown]
  - Vitamin D deficiency [Unknown]
  - Aplasia pure red cell [Unknown]
  - Hypothyroidism [Unknown]
  - Dysuria [Unknown]
